FAERS Safety Report 12887091 (Version 1)
Quarter: 2016Q4

REPORT INFORMATION
  Report Type: Spontaneous
  Country: CN (occurrence: CN)
  Receive Date: 20161026
  Receipt Date: 20161026
  Transmission Date: 20170207
  Serious: Yes (Other)
  Sender: FDA-Public Use
  Company Number: CN-GLAXOSMITHKLINE-CN2016GSK155730

PATIENT
  Sex: Male
  Weight: 56.6 kg

DRUGS (2)
  1. VOLTAREN [Suspect]
     Active Substance: DICLOFENAC SODIUM
     Indication: GOUT
     Dosage: 25 MG, QD
     Route: 048
     Dates: start: 20160702, end: 20160725
  2. COLCHICINE. [Suspect]
     Active Substance: COLCHICINE
     Indication: GOUT
     Dosage: 0.5 MG, TID
     Route: 048
     Dates: start: 20160702, end: 20160725

REACTIONS (1)
  - Hepatic function abnormal [Unknown]
